FAERS Safety Report 17307606 (Version 11)
Quarter: 2021Q3

REPORT INFORMATION
  Report Type: Spontaneous
  Country: US (occurrence: US)
  Receive Date: 20200123
  Receipt Date: 20210920
  Transmission Date: 20211014
  Serious: Yes (Other)
  Sender: FDA-Public Use
  Company Number: US-PFIZER INC-2020033629

PATIENT
  Age: 89 Year
  Sex: Female
  Weight: 54.88 kg

DRUGS (2)
  1. TOVIAZ [Suspect]
     Active Substance: FESOTERODINE FUMARATE
     Indication: BLADDER DISORDER
     Dosage: 1 DF, 1X/DAY
  2. TOVIAZ [Suspect]
     Active Substance: FESOTERODINE FUMARATE
     Dosage: UNK, 1X/DAY
     Dates: start: 2015

REACTIONS (5)
  - Illness [Unknown]
  - Blindness unilateral [Unknown]
  - Malaise [Unknown]
  - Therapeutic response unexpected [Unknown]
  - Agitation [Unknown]

NARRATIVE: CASE EVENT DATE: 2015
